FAERS Safety Report 20974525 (Version 3)
Quarter: 2022Q3

REPORT INFORMATION
  Report Type: Report from Study
  Country: US (occurrence: US)
  Receive Date: 20220617
  Receipt Date: 20220805
  Transmission Date: 20221026
  Serious: Yes (Other)
  Sender: FDA-Public Use
  Company Number: US-NOVARTISTESTPH-NVSC2022US138028

PATIENT
  Sex: Male

DRUGS (1)
  1. ENTRESTO [Suspect]
     Active Substance: SACUBITRIL\VALSARTAN
     Indication: Product used for unknown indication
     Dosage: UNK(STARTED APPROX 2 WEEKS AGO)
     Route: 065
     Dates: start: 202205

REACTIONS (3)
  - Renal impairment [Unknown]
  - Weight increased [Unknown]
  - Dizziness [Recovered/Resolved]
